FAERS Safety Report 8346835-4 (Version None)
Quarter: 2012Q2

REPORT INFORMATION
  Report Type: 
  Country: None (occurrence: None)
  Receive Date: 20120509
  Receipt Date: 20120501
  Transmission Date: 20120825
  Serious: Yes (Other)
  Sender: FDA-Public Use
  Company Number: US-UCBSA-056632

PATIENT
  Sex: Female

DRUGS (2)
  1. OXYCONTIN [Suspect]
  2. LORTAB [Suspect]
     Dosage: UNKNOWN DOSE

REACTIONS (1)
  - RENAL FAILURE ACUTE [None]
